FAERS Safety Report 23191121 (Version 1)
Quarter: 2023Q4

REPORT INFORMATION
  Report Type: Report from Study
  Country: US (occurrence: US)
  Receive Date: 20231116
  Receipt Date: 20231116
  Transmission Date: 20240110
  Serious: Yes (Hospitalization, Other)
  Sender: FDA-Public Use
  Company Number: US-002147023-NVSC2022US081372

PATIENT
  Age: 45 Year
  Sex: Female
  Weight: 55.329 kg

DRUGS (12)
  1. TREPROSTINIL [Suspect]
     Active Substance: TREPROSTINIL
     Indication: Pulmonary arterial hypertension
     Dosage: 6 NG/KG/MIN, CONT
     Route: 058
     Dates: start: 20211201
  2. TREPROSTINIL [Suspect]
     Active Substance: TREPROSTINIL
     Dosage: 9 NG/KG/MIN, CONT
     Route: 058
  3. TREPROSTINIL [Suspect]
     Active Substance: TREPROSTINIL
     Dosage: 15 NG/KG/MIN, CONT
     Route: 058
  4. TREPROSTINIL [Suspect]
     Active Substance: TREPROSTINIL
     Dosage: 7.5 NG/KG/MIN, CONT
     Route: 058
  5. TREPROSTINIL [Suspect]
     Active Substance: TREPROSTINIL
     Dosage: 27.8 NG/KG/MIN, CONT
     Route: 058
  6. TREPROSTINIL [Suspect]
     Active Substance: TREPROSTINIL
     Dosage: 30 NG/KG/MIN, CONT
     Route: 058
  7. TREPROSTINIL [Suspect]
     Active Substance: TREPROSTINIL
     Dosage: 28 NG/KG/MIN, CONT
     Route: 058
  8. TREPROSTINIL [Suspect]
     Active Substance: TREPROSTINIL
     Dosage: 28 NG/KG/ MIN, CONT
     Route: 058
     Dates: start: 20211201
  9. TREPROSTINIL [Suspect]
     Active Substance: TREPROSTINIL
     Dosage: 12 NG/KG/MIN, CONT
     Route: 058
  10. ADEMPAS [Concomitant]
     Active Substance: RIOCIGUAT
     Indication: Product used for unknown indication
     Dosage: UNK
     Route: 065
  11. AMBRISENTAN [Concomitant]
     Active Substance: AMBRISENTAN
     Indication: Product used for unknown indication
     Dosage: UNK
     Route: 065
  12. SILDENAFIL CITRATE [Concomitant]
     Active Substance: SILDENAFIL CITRATE
     Indication: Product used for unknown indication
     Dosage: UNK
     Route: 065

REACTIONS (37)
  - Mastoiditis [Unknown]
  - Injection site pain [Unknown]
  - Weight decreased [Unknown]
  - Pain [Unknown]
  - Eyelid skin dryness [Unknown]
  - Muscular weakness [Unknown]
  - Hypoaesthesia [Unknown]
  - Decreased appetite [Unknown]
  - Irritability [Unknown]
  - Hypersensitivity [Unknown]
  - Pruritus [Unknown]
  - Dry skin [Unknown]
  - Skin injury [Unknown]
  - Scab [Unknown]
  - Skin haemorrhage [Unknown]
  - Asthenia [Unknown]
  - Purulent discharge [Unknown]
  - Infusion site infection [Unknown]
  - Infusion site pain [Recovered/Resolved]
  - Infusion site swelling [Recovered/Resolved]
  - Injection site erythema [Not Recovered/Not Resolved]
  - Infusion site dryness [Unknown]
  - Infusion site discharge [Not Recovered/Not Resolved]
  - Infusion site pruritus [Not Recovered/Not Resolved]
  - Application site infection [Unknown]
  - Infusion site pain [Not Recovered/Not Resolved]
  - Infusion site haemorrhage [Unknown]
  - Headache [Unknown]
  - Nausea [Unknown]
  - Diarrhoea [Unknown]
  - Erythema [Unknown]
  - Myalgia [Unknown]
  - Fatigue [Unknown]
  - Oedema [Recovering/Resolving]
  - Arthralgia [Unknown]
  - Rash [Unknown]
  - Pain in extremity [Unknown]

NARRATIVE: CASE EVENT DATE: 20221001
